FAERS Safety Report 7560062-X (Version None)
Quarter: 2011Q2

REPORT INFORMATION
  Report Type: 
  Country: None (occurrence: None)
  Receive Date: 20110621
  Receipt Date: 20110608
  Transmission Date: 20111010
  Serious: Yes (Hospitalization)
  Sender: FDA-Public Use
  Company Number: US-CELGENEUS-163-21880-11033040

PATIENT
  Sex: Male
  Weight: 119.4 kg

DRUGS (9)
  1. ASPIRIN [Concomitant]
     Dosage: 50 MILLIGRAM
     Route: 065
  2. ALDACTONE [Concomitant]
     Dosage: 50 MILLIGRAM
     Route: 065
  3. DEXAMETHASONE [Concomitant]
     Indication: MULTIPLE MYELOMA
     Route: 065
  4. VELCADE [Concomitant]
     Indication: MULTIPLE MYELOMA
     Route: 065
  5. BUMEX [Concomitant]
     Dosage: 1 MILLIGRAM
     Route: 065
  6. LISINOPRIL [Concomitant]
     Dosage: 50 MILLIGRAM
     Route: 065
  7. HEPARIN [Concomitant]
     Dosage: 50 MILLIGRAM
     Route: 065
  8. REVLIMID [Suspect]
     Indication: MULTIPLE MYELOMA
     Dosage: 25 MILLIGRAM
     Route: 048
     Dates: start: 20110201
  9. ZOMETA [Concomitant]
     Dosage: 50 MILLIGRAM
     Route: 065

REACTIONS (2)
  - RENAL TUBULAR NECROSIS [None]
  - CARDIAC FAILURE CONGESTIVE [None]
